FAERS Safety Report 13541383 (Version 2)
Quarter: 2018Q2

REPORT INFORMATION
  Report Type: Spontaneous
  Country: US (occurrence: US)
  Receive Date: 20170512
  Receipt Date: 20180511
  Transmission Date: 20180711
  Serious: No
  Sender: FDA-Public Use
  Company Number: US-SA-2017SA048106

PATIENT

DRUGS (3)
  1. APIDRA [Suspect]
     Active Substance: INSULIN GLULISINE
     Route: 065
     Dates: start: 2016
  2. SYMLIN [Concomitant]
     Active Substance: PRAMLINTIDE ACETATE
  3. LANTUS [Concomitant]
     Active Substance: INSULIN GLARGINE
     Dosage: DOSE:35 UNIT(S)

REACTIONS (6)
  - Asthma [Unknown]
  - Dyspnoea [Unknown]
  - Hypoglycaemia [Unknown]
  - Lung disorder [Unknown]
  - Drug ineffective [Unknown]
  - Hyperglycaemia [Unknown]
